FAERS Safety Report 7832704-2 (Version None)
Quarter: 2011Q4

REPORT INFORMATION
  Report Type: 
  Country: None (occurrence: None)
  Receive Date: 20111024
  Receipt Date: 20111013
  Transmission Date: 20120403
  Serious: No
  Sender: FDA-Public Use
  Company Number: US-BIOGENIDEC-2011BI039290

PATIENT
  Age: 55 Year
  Sex: Female

DRUGS (7)
  1. TYSABRI [Suspect]
     Indication: MULTIPLE SCLEROSIS
     Route: 042
     Dates: start: 20110607
  2. PROVIGIL [Concomitant]
     Indication: FATIGUE
     Dates: start: 20110601
  3. VESICARE [Concomitant]
     Indication: POLLAKIURIA
     Dates: start: 20100101
  4. BACLOFEN [Concomitant]
     Indication: BACK DISORDER
     Dates: start: 20100101
  5. AMPYRA [Concomitant]
     Indication: GAIT DISTURBANCE
     Dates: start: 20100101
  6. ZOCOR [Concomitant]
     Indication: BLOOD CHOLESTEROL ABNORMAL
  7. ZETIA [Concomitant]
     Indication: BLOOD CHOLESTEROL ABNORMAL

REACTIONS (1)
  - URINARY TRACT INFECTION [None]
